FAERS Safety Report 10308332 (Version 1)
Quarter: 2014Q3

REPORT INFORMATION
  Report Type: Spontaneous
  Country: JP (occurrence: None)
  Receive Date: 20140714
  Receipt Date: 20140714
  Transmission Date: 20150326
  Serious: Yes (Other)
  Sender: FDA-Public Use
  Company Number: 2010JP003304

PATIENT
  Age: 35 Year
  Sex: Female
  Weight: 42 kg

DRUGS (21)
  1. AZUNOL [Concomitant]
     Active Substance: SODIUM GUALENATE
  2. EPADEL [Concomitant]
     Active Substance: ICOSAPENT
  3. EVE /00109201/ (IBUPROFEN) TABLET [Suspect]
     Active Substance: IBUPROFEN
     Indication: PRODUCT USED FOR UNKNOWN INDICATION
     Route: 048
     Dates: start: 201101, end: 20120123
  4. BENET (RISEDRONATE SODIUM) TABLET [Concomitant]
     Active Substance: RISEDRONIC ACID
  5. DASEN (SERRAPEPTASE) [Concomitant]
  6. MAGMITT (MAGNESIUM OXIDE) [Concomitant]
     Active Substance: MAGNESIUM OXIDE
  7. MUCOSTA (REBAMIPIDE) [Concomitant]
  8. ONEALFA (ALFACALCIDOL) TABLET [Concomitant]
  9. AMOBAN (ZOPICLONE) [Concomitant]
  10. ZANTAC [Suspect]
     Active Substance: RANITIDINE HYDROCHLORIDE
     Indication: PRODUCT USED FOR UNKNOWN INDICATION
     Route: 048
  11. MUCODYNE (CARBOCISTEINET) [Concomitant]
  12. ASPARA-CA (ASPARTATE CALCIUM) [Concomitant]
  13. SERASTAR (INDOMETACIN) [Concomitant]
  14. SELBEX (TEPRENONE) [Concomitant]
     Active Substance: TEPRENONE
  15. LOXONIN (LOXOPROFEN SODIUM) [Concomitant]
     Active Substance: LOXOPROFEN SODIUM
  16. ENDOXAN-P (CYCLOPHOSPHAMIDE) [Concomitant]
  17. GLAKAY (MENATETRENONE) [Concomitant]
  18. ISODINE GARGLE (POVIDONE -IODINE) [Concomitant]
  19. PROGRAF [Suspect]
     Active Substance: TACROLIMUS\TACROLIMUS ANHYDROUS
     Indication: LUPUS NEPHRITIS
     Route: 048
     Dates: start: 20070813, end: 20070910
  20. CLARITIN [Concomitant]
     Active Substance: LORATADINE
  21. PREDONINE [Suspect]
     Active Substance: PREDNISOLONE\PREDNISOLONE ACETATE\PREDNISOLONE SODIUM SUCCINATE
     Indication: LUPUS NEPHRITIS
     Route: 048
     Dates: end: 20080818

REACTIONS (8)
  - Headache [None]
  - Blood creatinine increased [None]
  - Dizziness [None]
  - Myositis [None]
  - Gangrene [None]
  - Skin ulcer [None]
  - Dermatomyositis [None]
  - Constipation [None]

NARRATIVE: CASE EVENT DATE: 20070910
